FAERS Safety Report 24286109 (Version 2)
Quarter: 2024Q3

REPORT INFORMATION
  Report Type: Report from Study
  Country: DE (occurrence: DE)
  Receive Date: 20240905
  Receipt Date: 20240926
  Transmission Date: 20241017
  Serious: Yes (Hospitalization)
  Sender: UCB
  Company Number: DE-UCBSA-2023057025

PATIENT
  Sex: Female

DRUGS (2)
  1. CERTOLIZUMAB PEGOL [Suspect]
     Active Substance: CERTOLIZUMAB PEGOL
     Indication: Axial spondyloarthritis
     Dosage: 200 MILLIGRAM, EV 2 WEEKS(QOW)
     Dates: start: 20220704
  2. CELECOXIB [Concomitant]
     Active Substance: CELECOXIB
     Indication: Axial spondyloarthritis
     Dosage: 400 MILLIGRAM, ONCE DAILY (QD)
     Dates: start: 20200818

REACTIONS (4)
  - Enterocolitis [Unknown]
  - Reactive gastropathy [Unknown]
  - Nasopharyngitis [Unknown]
  - Fractured coccyx [Unknown]

NARRATIVE: CASE EVENT DATE: 20230115
